FAERS Safety Report 22004888 (Version 1)
Quarter: 2023Q1

REPORT INFORMATION
  Report Type: Spontaneous
  Country: US (occurrence: US)
  Receive Date: 20230217
  Receipt Date: 20230217
  Transmission Date: 20230417
  Serious: Yes (Hospitalization)
  Sender: FDA-Public Use
  Company Number: US-MYLANLABS-2023M1017636

PATIENT
  Age: 72 Year
  Sex: Male

DRUGS (13)
  1. EPINEPHRINE [Suspect]
     Active Substance: EPINEPHRINE
     Indication: Hypotension
     Dosage: UNK
     Route: 065
  2. EPINEPHRINE [Suspect]
     Active Substance: EPINEPHRINE
     Indication: Carcinoid crisis
  3. PHENYLEPHRINE [Suspect]
     Active Substance: PHENYLEPHRINE HYDROCHLORIDE
     Indication: Hypotension
     Dosage: UNK
     Route: 065
  4. PHENYLEPHRINE [Suspect]
     Active Substance: PHENYLEPHRINE HYDROCHLORIDE
     Indication: Carcinoid crisis
  5. VASOPRESSIN [Suspect]
     Active Substance: VASOPRESSIN
     Indication: Hypotension
     Dosage: UNK
     Route: 065
  6. VASOPRESSIN [Suspect]
     Active Substance: VASOPRESSIN
     Indication: Carcinoid crisis
  7. MILRINONE [Concomitant]
     Active Substance: MILRINONE
     Indication: Prophylaxis
     Dosage: UNK
     Route: 065
  8. MILRINONE [Concomitant]
     Active Substance: MILRINONE
     Indication: Procedural hypotension
  9. NITRIC OXIDE [Concomitant]
     Active Substance: NITRIC OXIDE
     Indication: Prophylaxis
     Dosage: UNK
  10. NITRIC OXIDE [Concomitant]
     Active Substance: NITRIC OXIDE
     Indication: Procedural hypotension
  11. OCTREOTIDE [Concomitant]
     Active Substance: OCTREOTIDE
     Indication: Hypotension
     Dosage: UNK, 1 HOUR BEFORE SURGERY
     Route: 042
  12. OCTREOTIDE [Concomitant]
     Active Substance: OCTREOTIDE
     Dosage: UNK, BOLUS DOSES OF OCTREOTIDE
     Route: 042
  13. OCTREOTIDE [Concomitant]
     Active Substance: OCTREOTIDE
     Dosage: UNK, CONTINUOUS INFUSION OF OCTREOTIDE WAS INCREASED
     Route: 042

REACTIONS (1)
  - Drug ineffective [Unknown]
